FAERS Safety Report 4382129-X (Version None)
Quarter: 2004Q2

REPORT INFORMATION
  Report Type: 
  Country: None (occurrence: None)
  Receive Date: 20040621
  Receipt Date: 20030620
  Transmission Date: 20050107
  Serious: Yes (Hospitalization)
  Sender: FDA-Public Use
  Company Number: NUBN20030014

PATIENT
  Age: 15 Year
  Sex: Male

DRUGS (7)
  1. NUBAIN [Suspect]
     Indication: GENERAL SYMPTOM
     Dosage: 20 MG 6/DAY IV
     Route: 042
     Dates: start: 20030320, end: 20030322
  2. AUGMENTIN [Suspect]
     Indication: PERITONSILLAR ABSCESS
     Dosage: DAILY IV
     Route: 042
     Dates: start: 20030316, end: 20030321
  3. SURGAM [Suspect]
     Indication: PHARYNGOLARYNGEAL PAIN
     Dosage: 100MG TID PO
     Route: 048
     Dates: start: 20030317, end: 20030322
  4. ACETAMINOPHEN [Suspect]
     Indication: PYREXIA
     Dosage: DAILY IV
     Route: 042
     Dates: start: 20030316, end: 20030320
  5. ROCEPHIN [Suspect]
  6. ZANTAC [Suspect]
     Dates: start: 20030319, end: 20030321
  7. RULID [Suspect]
     Indication: PERITONSILLAR ABSCESS
     Dosage: 150 MG BID
     Dates: start: 20030321, end: 20030327

REACTIONS (1)
  - URTICARIA [None]
